FAERS Safety Report 5760931-7 (Version None)
Quarter: 2008Q2

REPORT INFORMATION
  Report Type: 
  Country: None (occurrence: None)
  Receive Date: 20080606
  Receipt Date: 20070718
  Transmission Date: 20081010
  Serious: No
  Sender: FDA-Public Use
  Company Number: US-ASTRAZENECA-2007UW17136

PATIENT
  Age: 80 Year
  Sex: Male
  Weight: 94.5 kg

DRUGS (7)
  1. PRILOSEC [Suspect]
     Route: 048
  2. PLAVIX [Concomitant]
  3. TOPRAL [Concomitant]
  4. ASPIRIN [Concomitant]
  5. CENTRUM SILVER [Concomitant]
  6. DIGESTIVE ADVANTAGE [Concomitant]
  7. PRILOSEC OTC [Concomitant]
     Indication: GASTROOESOPHAGEAL REFLUX DISEASE
     Route: 048
     Dates: start: 19970718, end: 20070716

REACTIONS (1)
  - DYSPHAGIA [None]
